FAERS Safety Report 10385858 (Version 3)
Quarter: 2014Q4

REPORT INFORMATION
  Report Type: Report from Study
  Country: US (occurrence: US)
  Receive Date: 20140814
  Receipt Date: 20141006
  Transmission Date: 20150528
  Serious: Yes (Hospitalization)
  Sender: FDA-Public Use
  Company Number: US-ACTELION-A-US2014-103356

PATIENT
  Age: 28 Year
  Sex: Female

DRUGS (8)
  1. REVATIO [Concomitant]
     Active Substance: SILDENAFIL CITRATE
     Dosage: 20 MG, TID
     Route: 048
  2. LANTUS [Concomitant]
     Active Substance: INSULIN GLARGINE
     Dosage: 10 UNK, QPM
     Route: 058
  3. HUMALOG [Concomitant]
     Active Substance: INSULIN LISPRO
     Dosage: 1 UNK, UNK
     Route: 058
  4. REMODULIN [Concomitant]
     Active Substance: TREPROSTINIL
  5. METOPROLOL [Concomitant]
     Active Substance: METOPROLOL
     Dosage: 25 MG, BID
     Route: 048
  6. DIGOXIN. [Concomitant]
     Active Substance: DIGOXIN
     Dosage: 250 MCG, UNK
     Route: 048
  7. MACITENTAN [Suspect]
     Active Substance: MACITENTAN
     Indication: PULMONARY ARTERIAL HYPERTENSION
     Dosage: 10 MG, QD
     Route: 048
     Dates: start: 20140613
  8. WARFARIN [Concomitant]
     Active Substance: WARFARIN

REACTIONS (5)
  - Haematocrit decreased [Unknown]
  - Ovarian cyst ruptured [Recovered/Resolved]
  - Malaise [Unknown]
  - Dyspnoea exertional [Unknown]
  - Pelvic pain [Recovered/Resolved]
